FAERS Safety Report 6214845-9 (Version None)
Quarter: 2009Q2

REPORT INFORMATION
  Report Type: 
  Country: None (occurrence: None)
  Receive Date: 20090604
  Receipt Date: 20090527
  Transmission Date: 20091009
  Serious: Yes (Hospitalization)
  Sender: FDA-Public Use
  Company Number: US-ROCHE-421946

PATIENT
  Age: 56 Year
  Sex: Female

DRUGS (4)
  1. CELLCEPT [Suspect]
     Route: 048
     Dates: start: 19990615
  2. NEORAL [Concomitant]
  3. DIOVAN [Concomitant]
  4. PREDNISONE [Concomitant]

REACTIONS (5)
  - ABDOMINAL PAIN LOWER [None]
  - BLOOD SODIUM DECREASED [None]
  - FATIGUE [None]
  - POLLAKIURIA [None]
  - ULCER [None]
